FAERS Safety Report 8159194-7 (Version None)
Quarter: 2012Q1

REPORT INFORMATION
  Report Type: 
  Country: None (occurrence: None)
  Receive Date: 20120223
  Receipt Date: 20120220
  Transmission Date: 20120608
  Serious: Yes (Other)
  Sender: FDA-Public Use
  Company Number: CA-JNJFOC-20120209945

PATIENT
  Sex: Female

DRUGS (1)
  1. NICORETTE GUM 4 MG FRESHMINT [Suspect]
     Indication: SMOKING CESSATION THERAPY
     Dosage: HALF OF A PIECE, THREE TO FOUR AND SOMETIMES SIX TIMES A DAY
     Route: 048
     Dates: start: 20091123, end: 20111201

REACTIONS (6)
  - TOOTH FRACTURE [None]
  - TOOTHACHE [None]
  - GINGIVAL PAIN [None]
  - DENTAL CARIES [None]
  - TOOTH INJURY [None]
  - INTENTIONAL DRUG MISUSE [None]
